FAERS Safety Report 8244624-2 (Version None)
Quarter: 2012Q1

REPORT INFORMATION
  Report Type: 
  Country: None (occurrence: None)
  Receive Date: 20120329
  Receipt Date: 20120328
  Transmission Date: 20120608
  Serious: No
  Sender: FDA-Public Use
  Company Number: US-B.I. PHARMACEUTICALS,INC./RIDGEFIELD-2012-BP-05907BP

PATIENT
  Sex: Male

DRUGS (2)
  1. TRADJENTA [Suspect]
     Indication: TYPE 2 DIABETES MELLITUS
     Dosage: 5 MG
     Route: 048
     Dates: start: 20120201
  2. TESTIN [Suspect]
     Indication: BLOOD TESTOSTERONE DECREASED
     Route: 061
     Dates: start: 20120228, end: 20120317

REACTIONS (3)
  - OEDEMA PERIPHERAL [None]
  - BLOOD GLUCOSE INCREASED [None]
  - PARAESTHESIA [None]
